FAERS Safety Report 10691181 (Version 1)
Quarter: 2015Q1

REPORT INFORMATION
  Report Type: Spontaneous
  Country: PL (occurrence: PL)
  Receive Date: 20150105
  Receipt Date: 20150105
  Transmission Date: 20150720
  Serious: Yes (Hospitalization)
  Sender: FDA-Public Use
  Company Number: PHHY2014PL170148

PATIENT
  Age: 58 Year
  Sex: Female

DRUGS (7)
  1. THIAMAZOLE [Suspect]
     Active Substance: METHIMAZOLE
     Indication: THYROXINE FREE INCREASED
     Dosage: 5 MG, QD
     Route: 065
  2. THIAMAZOLE [Suspect]
     Active Substance: METHIMAZOLE
     Indication: HYPOTHYROIDISM
     Dosage: 60 MG, QD
     Route: 065
  3. THIAMAZOLE [Suspect]
     Active Substance: METHIMAZOLE
     Indication: TRI-IODOTHYRONINE INCREASED
  4. CLOPIDOGREL [Concomitant]
     Active Substance: CLOPIDOGREL BISULFATE
     Indication: PRODUCT USED FOR UNKNOWN INDICATION
     Route: 065
  5. ASPIRIN. [Concomitant]
     Active Substance: ASPIRIN
     Indication: PRODUCT USED FOR UNKNOWN INDICATION
     Route: 065
  6. METFORMIN [Concomitant]
     Active Substance: METFORMIN HYDROCHLORIDE
     Indication: DIABETES MELLITUS
     Route: 065
  7. GLIMEPIRIDE. [Concomitant]
     Active Substance: GLIMEPIRIDE
     Indication: DIABETES MELLITUS
     Route: 065

REACTIONS (3)
  - Tonsillitis [Recovered/Resolved]
  - Upper respiratory tract infection [Recovered/Resolved]
  - Agranulocytosis [Recovered/Resolved]
